FAERS Safety Report 4380167-4 (Version None)
Quarter: 2004Q2

REPORT INFORMATION
  Report Type: 
  Country: None (occurrence: None)
  Receive Date: 20040614
  Receipt Date: 20040429
  Transmission Date: 20050107
  Serious: No
  Sender: FDA-Public Use
  Company Number: M04-341-130

PATIENT
  Age: 70 Year
  Sex: Male
  Weight: 75 kg

DRUGS (2)
  1. VELCADE [Suspect]
     Indication: MULTIPLE MYELOMA
     Dosage: 1.3 MG/M2, INTRAVENOUS BOLUS
     Route: 040
     Dates: start: 20040409
  2. PAMIDRONATE DISODIUM [Concomitant]

REACTIONS (2)
  - THROMBOCYTOPENIA [None]
  - TUMOUR LYSIS SYNDROME [None]
